FAERS Safety Report 12249797 (Version 1)
Quarter: 2016Q2

REPORT INFORMATION
  Report Type: Spontaneous
  Country: TR (occurrence: TR)
  Receive Date: 20160408
  Receipt Date: 20160408
  Transmission Date: 20160815
  Serious: Yes (Hospitalization)
  Sender: FDA-Public Use
  Company Number: TR-ASTRAZENECA-2016SE35326

PATIENT

DRUGS (2)
  1. TICAGRELOR [Suspect]
     Active Substance: TICAGRELOR
     Indication: ACUTE CORONARY SYNDROME
     Dosage: LOADING DOSE
     Route: 048
  2. TICAGRELOR [Suspect]
     Active Substance: TICAGRELOR
     Indication: ACUTE CORONARY SYNDROME
     Route: 048

REACTIONS (2)
  - Bradycardia [Unknown]
  - Atrioventricular block second degree [Unknown]
